FAERS Safety Report 16526831 (Version 4)
Quarter: 2019Q3

REPORT INFORMATION
  Report Type: Spontaneous
  Country: JP (occurrence: JP)
  Receive Date: 20190703
  Receipt Date: 20190717
  Transmission Date: 20191004
  Serious: Yes (Other)
  Sender: FDA-Public Use
  Company Number: PHJP2019JP007920

PATIENT
  Age: 7 Year
  Sex: Male

DRUGS (2)
  1. NEORAL [Suspect]
     Active Substance: CYCLOSPORINE
     Indication: HAEMOPHAGOCYTIC LYMPHOHISTIOCYTOSIS
     Dosage: UNK
     Route: 048
  2. ACETYLSALICYLIC ACID;DEXAMETHASONE;ORPHENADRI [Concomitant]
     Indication: HAEMOPHAGOCYTIC LYMPHOHISTIOCYTOSIS
     Dosage: UNK
     Route: 065

REACTIONS (8)
  - Product use in unapproved indication [Unknown]
  - Headache [Unknown]
  - Blood pressure increased [Unknown]
  - Toxic encephalopathy [Recovered/Resolved]
  - Cerebral atrophy [Unknown]
  - Scar [Unknown]
  - Aphasia [Recovering/Resolving]
  - Seizure [Unknown]
